FAERS Safety Report 4313093-7 (Version None)
Quarter: 2004Q1

REPORT INFORMATION
  Report Type: 
  Country: None (occurrence: None)
  Receive Date: 20040304
  Receipt Date: 20040226
  Transmission Date: 20041129
  Serious: Yes (Life-Threatening, Hospitalization)
  Sender: FDA-Public Use
  Company Number: 2003179435US

PATIENT
  Age: 63 Year
  Sex: Female
  Weight: 96.3 kg

DRUGS (13)
  1. BEXTRA [Suspect]
     Indication: OSTEOARTHRITIS
     Dosage: 20 MG, BID, ORAL
     Route: 048
     Dates: start: 20020611, end: 20030611
  2. LISINOPRIL [Suspect]
     Indication: HYPERTENSION
     Dosage: 10 MG, QD, ORAL
     Route: 048
     Dates: start: 20020611, end: 20030611
  3. LEXAPRO [Concomitant]
  4. AMARYL [Concomitant]
  5. ZAROXOLYN [Concomitant]
  6. ZOCOR [Concomitant]
  7. PREMARIN [Concomitant]
  8. ELAVIL [Concomitant]
  9. TRAMADOL HCL [Concomitant]
  10. FUROSEMIDE [Concomitant]
  11. TIZANIDINE (TIZANIDINE) [Concomitant]
  12. PREVACID [Concomitant]
  13. GLUCOPHAGE [Concomitant]

REACTIONS (11)
  - ARRHYTHMIA [None]
  - CARDIAC FAILURE CONGESTIVE [None]
  - DIALYSIS [None]
  - HYPERKALAEMIA [None]
  - HYPONATRAEMIA [None]
  - LACTIC ACIDOSIS [None]
  - PULMONARY OEDEMA [None]
  - RENAL FAILURE ACUTE [None]
  - RESPIRATORY DISTRESS [None]
  - RESPIRATORY FAILURE [None]
  - VOMITING [None]
